FAERS Safety Report 10021250 (Version 3)
Quarter: 2014Q2

REPORT INFORMATION
  Report Type: Spontaneous
  Country: JP (occurrence: JP)
  Receive Date: 20140319
  Receipt Date: 20140422
  Transmission Date: 20141212
  Serious: Yes (Death, Other)
  Sender: FDA-Public Use
  Company Number: JP-009507513-1403JPN007401

PATIENT
  Age: 61 Year
  Sex: Male

DRUGS (17)
  1. EMEND [Suspect]
     Indication: PROPHYLAXIS OF NAUSEA AND VOMITING
     Dosage: 125MG DAILY
     Route: 048
  2. EMEND [Suspect]
     Dosage: 80MG DAILY
     Route: 048
  3. OXYCODONE [Suspect]
     Dosage: 10MG DAILY
     Route: 048
  4. MORPHINE HYDROCHLORIDE [Concomitant]
  5. CISPLATIN [Concomitant]
     Indication: CHEMOTHERAPY
  6. FLUOROURACIL [Concomitant]
     Indication: CHEMOTHERAPY
  7. PALONOSETRON HYDROCHLORIDE [Concomitant]
  8. DEXAMETHASONE [Concomitant]
     Route: 048
  9. DEXAMETHASONE [Concomitant]
     Route: 048
  10. LORAZEPAM [Concomitant]
     Indication: PROPHYLAXIS OF NAUSEA AND VOMITING
  11. MOSAPRIDE CITRATE [Concomitant]
     Indication: GASTROINTESTINAL HYPERMOTILITY
  12. MOSAPRIDE CITRATE [Concomitant]
     Indication: GASTROSTOMY
  13. DAI-KENCHU-TO [Concomitant]
     Indication: GASTROINTESTINAL HYPERMOTILITY
  14. DAI-KENCHU-TO [Concomitant]
     Indication: GASTROSTOMY
  15. PROCHLORPERAZINE MALEATE [Concomitant]
  16. QUETIAPINE FUMARATE [Concomitant]
  17. OLANZAPINE [Concomitant]

REACTIONS (5)
  - Oesophageal rupture [Fatal]
  - Vomiting [Fatal]
  - Stomatitis [Unknown]
  - Pharyngeal inflammation [Unknown]
  - Nausea [Unknown]
